FAERS Safety Report 9707620 (Version 2)
Quarter: 2013Q4

REPORT INFORMATION
  Report Type: Spontaneous
  Country: US (occurrence: US)
  Receive Date: 20131125
  Receipt Date: 20131210
  Transmission Date: 20140711
  Serious: No
  Sender: FDA-Public Use
  Company Number: US-TEVA-377184USA

PATIENT
  Age: 36 Year
  Sex: Female
  Weight: 70.82 kg

DRUGS (5)
  1. PARAGARD 380A [Suspect]
     Indication: CONTRACEPTION
     Route: 015
     Dates: start: 20120131, end: 20121218
  2. PARAGARD 380A [Suspect]
     Route: 015
     Dates: start: 20130111
  3. SYNTHROID [Concomitant]
     Indication: HYPOTHYROIDISM
  4. LAMICTAL [Concomitant]
     Indication: DEPRESSION
  5. PAXIL [Interacting]
     Indication: DEPRESSION

REACTIONS (1)
  - Device expulsion [Recovered/Resolved]
